FAERS Safety Report 17767799 (Version 2)
Quarter: 2020Q2

REPORT INFORMATION
  Report Type: Report from Study
  Country: US (occurrence: US)
  Receive Date: 20200511
  Receipt Date: 20200603
  Transmission Date: 20200714
  Serious: Yes (Death, Hospitalization)
  Sender: FDA-Public Use
  Company Number: US-ACTELION-A-US2020-204593

PATIENT
  Age: 95 Year
  Sex: Male
  Weight: 58.96 kg

DRUGS (4)
  1. MIDODRINE [Concomitant]
     Active Substance: MIDODRINE
     Dosage: 5 MG, BID
  2. MULTAQ [Concomitant]
     Active Substance: DRONEDARONE
     Dosage: 400 MG 1/2 TAB DAILY
     Route: 048
  3. BYSTOLIC [Concomitant]
     Active Substance: NEBIVOLOL HYDROCHLORIDE
     Dosage: 2.5 MG
  4. OPSUMIT [Suspect]
     Active Substance: MACITENTAN
     Indication: PULMONARY ARTERIAL HYPERTENSION
     Dosage: 10 MG, QD
     Route: 048
     Dates: start: 20140116, end: 20200418

REACTIONS (4)
  - Cardiac failure [Fatal]
  - Cerebral haemorrhage [Unknown]
  - Rehabilitation therapy [Unknown]
  - Presyncope [Unknown]

NARRATIVE: CASE EVENT DATE: 20200418
